FAERS Safety Report 9751504 (Version 2)
Quarter: 2013Q4

REPORT INFORMATION
  Report Type: Spontaneous
  Country: US (occurrence: US)
  Receive Date: 20131212
  Receipt Date: 20131212
  Transmission Date: 20140711
  Serious: Yes (Death)
  Sender: FDA-Public Use
  Company Number: US-NAPPMUNDI-USA-2012-0086684

PATIENT
  Age: 40 Year
  Sex: Male

DRUGS (2)
  1. DILAUDID TABLET [Suspect]
     Indication: PAIN
     Route: 048
  2. CELEXA /00582602/ [Suspect]
     Indication: DEPRESSION
     Route: 048

REACTIONS (1)
  - Accidental overdose [Fatal]
